FAERS Safety Report 18129640 (Version 1)
Quarter: 2020Q3

REPORT INFORMATION
  Report Type: Spontaneous
  Country: US (occurrence: US)
  Receive Date: 20200810
  Receipt Date: 20200810
  Transmission Date: 20201103
  Serious: No
  Sender: FDA-Public Use
  Company Number: US-PERRIGO-19US009464

PATIENT
  Age: 84 Year
  Sex: Male
  Weight: 89.34 kg

DRUGS (4)
  1. ANTACIDS WITH ANTIFLATULENTS [Concomitant]
     Indication: ABDOMINAL DISCOMFORT
  2. ANTACIDS WITH ANTIFLATULENTS [Concomitant]
     Indication: ABDOMINAL PAIN UPPER
  3. LORATADINE. [Suspect]
     Active Substance: LORATADINE
     Indication: PRURITUS
     Dosage: 10 MG, NIGHTLY
     Route: 048
     Dates: start: 20190715, end: 20190804
  4. ANTACIDS WITH ANTIFLATULENTS [Concomitant]
     Indication: CONSTIPATION
     Dosage: UNKNOWN, UNKNOWN
     Route: 048
     Dates: start: 20190731, end: 20190801

REACTIONS (5)
  - Abdominal discomfort [Recovered/Resolved]
  - Constipation [Not Recovered/Not Resolved]
  - Abdominal pain upper [Recovered/Resolved]
  - Drug effective for unapproved indication [Recovered/Resolved]
  - Expired product administered [Recovered/Resolved]

NARRATIVE: CASE EVENT DATE: 20190715
